FAERS Safety Report 4491502-0 (Version None)
Quarter: 2004Q4

REPORT INFORMATION
  Report Type: 
  Country: None (occurrence: None)
  Receive Date: 20041101
  Receipt Date: 20041015
  Transmission Date: 20050328
  Serious: Yes (Other)
  Sender: FDA-Public Use
  Company Number: B0348722A

PATIENT
  Age: 82 Year
  Sex: Female

DRUGS (6)
  1. PAXIL [Suspect]
     Dosage: 20 MG/PER DAY/ORAL
     Route: 048
  2. CHLORTHALIDONE [Suspect]
     Dosage: 25 MG/PER DAY/ORAL
     Route: 048
  3. ISOSORBIDE DINITRATE [Concomitant]
  4. SOTALOL HYDROCHLORIDE [Concomitant]
  5. BROMAZEPAM [Concomitant]
  6. CETIRIZINE HCL [Concomitant]

REACTIONS (6)
  - BRADYCARDIA [None]
  - CONFUSIONAL STATE [None]
  - DEPRESSED LEVEL OF CONSCIOUSNESS [None]
  - DIZZINESS [None]
  - HYPONATRAEMIA [None]
  - NAUSEA [None]
